FAERS Safety Report 4658562-5 (Version None)
Quarter: 2005Q2

REPORT INFORMATION
  Report Type: 
  Country: None (occurrence: None)
  Receive Date: 20050509
  Receipt Date: 20050429
  Transmission Date: 20051028
  Serious: Yes (Other)
  Sender: FDA-Public Use
  Company Number: 26562

PATIENT
  Age: 11 Year
  Sex: Female

DRUGS (1)
  1. ALDARA [Suspect]
     Indication: SKIN PAPILLOMA
     Dosage: (0.25 SACHET, 1 IN 1 DAY(S), TOPICAL
     Route: 061
     Dates: start: 20050303, end: 20050420

REACTIONS (1)
  - CONVULSION [None]
